FAERS Safety Report 10187824 (Version 1)
Quarter: 2014Q2

REPORT INFORMATION
  Report Type: Spontaneous
  Country: US (occurrence: US)
  Receive Date: 20140522
  Receipt Date: 20140522
  Transmission Date: 20141212
  Serious: No
  Sender: FDA-Public Use
  Company Number: US-SA-2013SA103133

PATIENT
  Age: 73 Year
  Sex: Female

DRUGS (8)
  1. LANTUS SOLOSTAR [Suspect]
     Dosage: DOSE:55 UNIT(S)
     Route: 051
  2. LANTUS SOLOSTAR [Suspect]
     Dosage: DOSE:55 UNIT(S)
     Route: 051
  3. LANTUS SOLOSTAR [Suspect]
     Dosage: DOSE:55 UNIT(S)
     Route: 051
  4. LANTUS SOLOSTAR [Suspect]
     Dosage: DOSE:55 UNIT(S)
     Route: 051
  5. SOLOSTAR [Concomitant]
  6. SOLOSTAR [Concomitant]
  7. SOLOSTAR [Concomitant]
  8. SOLOSTAR [Concomitant]

REACTIONS (3)
  - Skin disorder [Unknown]
  - Expired product administered [Unknown]
  - Incorrect product storage [Unknown]
